FAERS Safety Report 10090497 (Version 2)
Quarter: 2014Q2

REPORT INFORMATION
  Report Type: Spontaneous
  Country: US (occurrence: US)
  Receive Date: 20140421
  Receipt Date: 20140509
  Transmission Date: 20141212
  Serious: Yes (Other)
  Sender: FDA-Public Use
  Company Number: US-BAYER-2014-056515

PATIENT
  Age: 40 Year
  Sex: Female
  Weight: 99.77 kg

DRUGS (8)
  1. YASMIN [Suspect]
  2. ALBUTEROL [Concomitant]
  3. ADVAIR [Concomitant]
  4. ALLEGRA [Concomitant]
  5. ZITHROMAX [Concomitant]
  6. SYNTHROID [Concomitant]
  7. PAXIL [Concomitant]
  8. MAGNESIUM SULFATE [Concomitant]

REACTIONS (2)
  - Thrombophlebitis superficial [None]
  - Axillary vein thrombosis [None]
